FAERS Safety Report 8438414-5 (Version None)
Quarter: 2012Q2

REPORT INFORMATION
  Report Type: 
  Country: None (occurrence: None)
  Receive Date: 20120614
  Receipt Date: 20120605
  Transmission Date: 20120825
  Serious: Yes (Other)
  Sender: FDA-Public Use
  Company Number: US-ELI_LILLY_AND_COMPANY-US201205001016

PATIENT
  Sex: Female
  Weight: 62.585 kg

DRUGS (1)
  1. FORTEO [Suspect]
     Indication: OSTEOPOROSIS
     Dosage: UNK
     Dates: start: 20120403

REACTIONS (5)
  - RHINORRHOEA [None]
  - DYSGEUSIA [None]
  - PELVIC FRACTURE [None]
  - WRIST FRACTURE [None]
  - OCULAR HYPERAEMIA [None]
